FAERS Safety Report 7327100-0 (Version None)
Quarter: 2011Q1

REPORT INFORMATION
  Report Type: 
  Country: None (occurrence: None)
  Receive Date: 20110302
  Receipt Date: 20110224
  Transmission Date: 20110831
  Serious: Yes (Death, Other)
  Sender: FDA-Public Use
  Company Number: PHHY2011NL15095

PATIENT
  Age: 26 Year
  Sex: Female

DRUGS (4)
  1. CYCLOSPORINE [Suspect]
     Indication: APLASTIC ANAEMIA
     Dosage: 5 MG/KG, BID
  2. METHYLPREDNISOLONE [Suspect]
  3. TOBRAMYCIN [Suspect]
     Indication: PROPHYLAXIS
  4. TOBRAMYCIN [Suspect]
     Indication: NEUTROPENIA

REACTIONS (26)
  - PYREXIA [None]
  - PUPILS UNEQUAL [None]
  - PANCYTOPENIA [None]
  - STAPHYLOCOCCAL BACTERAEMIA [None]
  - COMA SCALE ABNORMAL [None]
  - PNEUMONIA [None]
  - SEPSIS [None]
  - CEREBRAL INFARCTION [None]
  - DIARRHOEA [None]
  - RASH MACULO-PAPULAR [None]
  - GINGIVAL BLEEDING [None]
  - DRUG EXPOSURE DURING PREGNANCY [None]
  - INTRAUTERINE INFECTION [None]
  - PNEUMOTHORAX [None]
  - CEREBRAL HAEMORRHAGE [None]
  - NEUTROPENIA [None]
  - HYPOXIA [None]
  - HYPOTENSION [None]
  - VOMITING [None]
  - HEADACHE [None]
  - DRUG INEFFECTIVE [None]
  - THROMBOCYTOPENIA [None]
  - DYSPNOEA [None]
  - INDUCED LABOUR [None]
  - HLA MARKER STUDY POSITIVE [None]
  - PREMATURE LABOUR [None]
